FAERS Safety Report 8427762-0 (Version None)
Quarter: 2012Q2

REPORT INFORMATION
  Report Type: 
  Country: None (occurrence: None)
  Receive Date: 20120611
  Receipt Date: 20120606
  Transmission Date: 20120825
  Serious: Yes (Death, Hospitalization)
  Sender: FDA-Public Use
  Company Number: US-CELGENEUS-163-50794-11123717

PATIENT
  Age: 56 Year
  Sex: Female
  Weight: 60.881 kg

DRUGS (36)
  1. METOPROLOL TARTRATE [Concomitant]
     Dosage: 37.5 MILLIGRAM
     Route: 048
  2. OXYCODONE HCL [Concomitant]
     Dosage: 5 MILLIGRAM
     Route: 065
  3. DOCUSATE [Concomitant]
     Dosage: 200 MILLIGRAM
     Route: 048
  4. IPRATROPIUM BROMIDE [Concomitant]
     Dosage: .5 MILLIGRAM
     Route: 065
  5. METOCLOPRAMIDE [Concomitant]
     Dosage: 10 MILLIGRAM
     Route: 041
  6. VITAMIN D [Concomitant]
     Dosage: 50000 UNITS
     Route: 048
  7. LANOLIN [Concomitant]
     Indication: DRY SKIN
     Route: 065
  8. ZOLINZA [Suspect]
     Dosage: 400 MILLIGRAM
     Route: 048
     Dates: start: 20111107, end: 20111113
  9. BENADRYL [Concomitant]
     Dosage: 25 MILLIGRAM
     Route: 048
  10. BENADRYL [Concomitant]
     Indication: NAUSEA
  11. SENNA-MINT WAF [Concomitant]
     Indication: CONSTIPATION
     Route: 048
  12. FLUCONAZOLE [Concomitant]
     Route: 048
  13. LEVOFLOXACIN [Concomitant]
     Dosage: 750 MILLIGRAM
     Route: 048
  14. MYLOTARG [Suspect]
     Dosage: 3 MILLIGRAM/SQ. METER
     Route: 041
     Dates: start: 20111110, end: 20111110
  15. OMEPRAZOLE [Concomitant]
     Dosage: 20 MILLIGRAM
     Route: 065
  16. ALUMINUM-MAGNESIUM-SIMETHICONE [Concomitant]
     Route: 048
  17. PROCHLORPERAZINE [Concomitant]
     Dosage: 10 MILLIGRAM
     Route: 048
  18. VIDAZA [Suspect]
     Dosage: 75 MILLIGRAM/SQ. METER
     Dates: start: 20111107, end: 20111113
  19. ZOFRAN [Concomitant]
     Route: 048
  20. ACYCLOVIR [Concomitant]
     Dosage: 800 MILLIGRAM
     Route: 048
  21. ASCORBIC ACID [Concomitant]
     Dosage: 500 MILLIGRAM
     Route: 048
  22. HYPROMELLOSE [Concomitant]
     Dosage: 1 DROPS
     Route: 047
  23. LOPERAMIDE [Concomitant]
     Dosage: 2 MILLIGRAM
     Route: 065
  24. LORAZEPAM [Concomitant]
     Dosage: .5 MILLIGRAM
     Route: 065
  25. MAGNESIUM HYDROXIDE TAB [Concomitant]
     Dosage: 30 MILLILITER
     Route: 048
  26. DALTEPARIN SODIUM [Concomitant]
     Dosage: 2.5 MILLIGRAM
     Route: 065
  27. ACETAMINOPHEN [Concomitant]
     Route: 048
  28. LORAZEPAM [Concomitant]
     Dosage: 0.5-1MG
  29. MAGNESIUM CITRATE [Concomitant]
     Indication: CONSTIPATION
     Route: 048
  30. MULTI-VITAMINS [Concomitant]
     Route: 048
  31. MIRALAX [Concomitant]
     Route: 048
  32. ALBUTEROL [Concomitant]
     Dosage: 2.5 MILLIGRAM
     Route: 065
  33. CHLORHEXIDINE GLUCONATE [Concomitant]
     Dosage: 2 PERCENT
     Route: 061
  34. PREDNISONE TAB [Concomitant]
     Dosage: 20 MILLIGRAM
     Route: 048
  35. MORPHINE [Concomitant]
     Dosage: 1.5 MILLIGRAM
     Route: 041
  36. EUCERIN [Concomitant]
     Indication: DRY SKIN
     Route: 061

REACTIONS (5)
  - PNEUMONITIS [None]
  - SUPRAVENTRICULAR TACHYCARDIA [None]
  - ACUTE MYELOID LEUKAEMIA [None]
  - PNEUMOTHORAX [None]
  - PYREXIA [None]
